FAERS Safety Report 7926888-5 (Version None)
Quarter: 2011Q4

REPORT INFORMATION
  Report Type: 
  Country: None (occurrence: None)
  Receive Date: 20111118
  Receipt Date: 20111116
  Transmission Date: 20120403
  Serious: Yes (Other)
  Sender: FDA-Public Use
  Company Number: IT-PFIZER INC-2011280631

PATIENT
  Age: 61 Year
  Sex: Male

DRUGS (3)
  1. XELODA [Suspect]
     Indication: COLON CANCER
     Dosage: 3500 MG, 1X/DAY
     Route: 048
     Dates: start: 20111012, end: 20111026
  2. ERBITUX [Suspect]
     Indication: COLON CANCER
     Dosage: 450 MG, CYCLIC
     Route: 042
     Dates: start: 20111012, end: 20111012
  3. CAMPTOSAR [Suspect]
     Indication: COLON CANCER
     Dosage: 250 MG, CYCLIC
     Route: 042
     Dates: start: 20111012, end: 20111012

REACTIONS (3)
  - DIARRHOEA [None]
  - NEUTROPENIA [None]
  - SKIN TOXICITY [None]
